FAERS Safety Report 7262477-6 (Version None)
Quarter: 2011Q1

REPORT INFORMATION
  Report Type: 
  Country: None (occurrence: None)
  Receive Date: 20110130
  Receipt Date: 20101208
  Transmission Date: 20110831
  Serious: No
  Sender: FDA-Public Use
  Company Number: US-ABBOTT-10P-163-0690397-00

PATIENT
  Age: 33 Year
  Sex: Female

DRUGS (8)
  1. IRON [Concomitant]
     Indication: PRODUCT USED FOR UNKNOWN INDICATION
  2. ALBUTEROL [Concomitant]
     Indication: ASTHMA
  3. NEXIUM [Concomitant]
     Indication: GASTROOESOPHAGEAL REFLUX DISEASE
  4. HUMIRA [Suspect]
     Indication: CROHN'S DISEASE
     Dosage: LOADING DOSE
     Dates: start: 20101127
  5. BIRTH CONTROL PILL [Concomitant]
     Indication: CONTRACEPTION
     Dosage: DAILY
  6. PENTASA [Concomitant]
     Indication: CROHN'S DISEASE
     Dosage: 2 TABLETS FOUR TIMES A DAY
  7. ATENOLOL [Concomitant]
     Indication: HYPERTENSION
     Dosage: DAILY
  8. MULTI-VITAMIN [Concomitant]
     Indication: PRODUCT USED FOR UNKNOWN INDICATION
     Dosage: DAILY

REACTIONS (5)
  - INJECTION SITE HAEMATOMA [None]
  - INJECTION SITE WARMTH [None]
  - INJECTION SITE ERYTHEMA [None]
  - INJECTION SITE PAPULE [None]
  - INJECTION SITE PRURITUS [None]
